FAERS Safety Report 16192826 (Version 1)
Quarter: 2019Q2

REPORT INFORMATION
  Report Type: Spontaneous
  Country: HR (occurrence: HR)
  Receive Date: 20190412
  Receipt Date: 20190412
  Transmission Date: 20190711
  Serious: Yes (Hospitalization, Other)
  Sender: FDA-Public Use
  Company Number: PHHY2019HR054885

PATIENT
  Sex: Female

DRUGS (8)
  1. SALOFALK [MESALAZINE] [Concomitant]
     Active Substance: MESALAMINE
     Indication: CROHN^S DISEASE
  2. METHOTREXATE (METHOTREXATE SODIUM) [Suspect]
     Active Substance: METHOTREXATE SODIUM
     Indication: ARTHRALGIA
     Dosage: 20 MG (7.5 TO 20 MG), QW
     Route: 048
     Dates: start: 20160608, end: 20170214
  3. URSOFALK [Concomitant]
     Active Substance: URSODIOL
     Indication: CROHN^S DISEASE
  4. METHOTREXATE (METHOTREXATE SODIUM) [Suspect]
     Active Substance: METHOTREXATE SODIUM
     Indication: AUTOIMMUNE HEPATITIS
  5. ENTYVIO [Concomitant]
     Active Substance: VEDOLIZUMAB
     Indication: CROHN^S DISEASE
     Dosage: 300 MG, UNK
     Route: 042
     Dates: start: 201611, end: 201701
  6. IMURAN [Suspect]
     Active Substance: AZATHIOPRINE
     Indication: HEPATIC NECROSIS
     Dosage: 50 MG, UNK
     Route: 065
  7. URSOFALK [Concomitant]
     Active Substance: URSODIOL
     Indication: ARTHRALGIA
     Dosage: 1000 MG, UNK
     Route: 048
     Dates: start: 2013
  8. SALOFALK [MESALAZINE] [Concomitant]
     Active Substance: MESALAMINE
     Indication: ARTHRALGIA
     Dosage: 3 G, UNK
     Route: 048
     Dates: start: 2012

REACTIONS (15)
  - Interstitial lung disease [Unknown]
  - Cholangitis sclerosing [Unknown]
  - Pleural effusion [Unknown]
  - Body temperature increased [Unknown]
  - Influenza [Unknown]
  - Pneumonia [Recovered/Resolved]
  - Pyrexia [Unknown]
  - Hepatic fibrosis [Unknown]
  - Gamma-glutamyltransferase increased [Unknown]
  - Aspartate aminotransferase increased [Unknown]
  - Splenomegaly [Unknown]
  - Arthralgia [Not Recovered/Not Resolved]
  - Alanine aminotransferase increased [Unknown]
  - Autoimmune hepatitis [Unknown]
  - Hepatic necrosis [Unknown]

NARRATIVE: CASE EVENT DATE: 201611
